FAERS Safety Report 11196179 (Version 1)
Quarter: 2015Q2

REPORT INFORMATION
  Report Type: Spontaneous
  Country: US (occurrence: None)
  Receive Date: 20150616
  Receipt Date: 20150616
  Transmission Date: 20150821
  Serious: Yes (Hospitalization)
  Sender: FDA-Public Use
  Company Number: None

PATIENT
  Age: 64 Year
  Sex: Female

DRUGS (1)
  1. LEVOFLOXACIN 500 MG ZYDUS [Suspect]
     Active Substance: LEVOFLOXACIN
     Dosage: 1 PILL QD ORAL
     Route: 048
     Dates: start: 20150303, end: 20150311

REACTIONS (4)
  - Dyspnoea [None]
  - Hyperhidrosis [None]
  - Chest discomfort [None]
  - Heart rate increased [None]

NARRATIVE: CASE EVENT DATE: 20150313
